FAERS Safety Report 4341863-8 (Version None)
Quarter: 2004Q2

REPORT INFORMATION
  Report Type: 
  Country: None (occurrence: None)
  Receive Date: 20040415
  Receipt Date: 20040406
  Transmission Date: 20050107
  Serious: Yes (Other)
  Sender: FDA-Public Use
  Company Number: US-JNJFOC-20040401422

PATIENT
  Age: 50 Year
  Sex: Male

DRUGS (5)
  1. DURAGESIC [Suspect]
     Indication: PAIN
     Dosage: SEE IMAGE
     Route: 062
     Dates: start: 20040101, end: 20040318
  2. DURAGESIC [Suspect]
     Indication: PAIN
     Dosage: SEE IMAGE
     Route: 062
     Dates: start: 20040318
  3. NEURONTIN [Concomitant]
  4. SKELAXIN [Concomitant]
  5. KLONOPIN [Concomitant]

REACTIONS (8)
  - CHEST PAIN [None]
  - DIZZINESS [None]
  - FATIGUE [None]
  - HEADACHE [None]
  - HYPERTENSION [None]
  - NAUSEA [None]
  - TREMOR [None]
  - VISION BLURRED [None]
